FAERS Safety Report 8084457-3 (Version None)
Quarter: 2012Q1

REPORT INFORMATION
  Report Type: 
  Country: None (occurrence: None)
  Receive Date: 20120128
  Receipt Date: 20110324
  Transmission Date: 20120608
  Serious: No
  Sender: FDA-Public Use
  Company Number: US-ABBOTT-11P-163-0714057-00

PATIENT
  Sex: Male

DRUGS (7)
  1. PREDNISONE [Concomitant]
     Dates: start: 20110101
  2. PREDNISONE [Concomitant]
     Dates: start: 20110101
  3. HUMIRA [Suspect]
     Indication: CROHN'S DISEASE
     Dates: start: 20110214, end: 20110214
  4. HUMIRA [Suspect]
     Dates: start: 20110314
  5. PREDNISONE [Concomitant]
     Dates: start: 20110101
  6. PREDNISONE [Concomitant]
     Indication: CROHN'S DISEASE
     Dates: start: 20110101
  7. HUMIRA [Suspect]
     Dates: start: 20110228, end: 20110228

REACTIONS (2)
  - DIARRHOEA [None]
  - FLATULENCE [None]
